FAERS Safety Report 6335936-8 (Version None)
Quarter: 2009Q3

REPORT INFORMATION
  Report Type: 
  Country: None (occurrence: None)
  Receive Date: 20090831
  Receipt Date: 20090831
  Transmission Date: 20100115
  Serious: No
  Sender: FDA-Public Use
  Company Number: None

PATIENT
  Age: 54 Year
  Sex: Female
  Weight: 56.6996 kg

DRUGS (3)
  1. BONIVA [Suspect]
     Indication: OSTEOPOROSIS
     Dosage: 1X PER MONTH ORAL
     Route: 048
     Dates: start: 20070401
  2. BONIVA [Suspect]
     Indication: OSTEOPOROSIS
     Dosage: 1X PER MONTH ORAL
     Route: 048
     Dates: start: 20070501
  3. BONIVA [Suspect]
     Indication: OSTEOPOROSIS
     Dosage: 1X PER MONTH ORAL
     Route: 048
     Dates: start: 20070601

REACTIONS (4)
  - ASTHENIA [None]
  - BACK DISORDER [None]
  - BACK PAIN [None]
  - DYSSTASIA [None]
